FAERS Safety Report 13921836 (Version 4)
Quarter: 2017Q4

REPORT INFORMATION
  Report Type: Report from Study
  Country: ES (occurrence: ES)
  Receive Date: 20170830
  Receipt Date: 20171220
  Transmission Date: 20180320
  Serious: Yes (Death, Hospitalization)
  Sender: FDA-Public Use
  Company Number: ES-ACTELION-A-US2017-158834

PATIENT
  Age: 69 Year
  Sex: Female

DRUGS (1)
  1. VENTAVIS [Suspect]
     Active Substance: ILOPROST
     Indication: PULMONARY HYPERTENSION
     Dosage: 1 DOSAGE FORM, 6 TIMES DAILY
     Route: 055
     Dates: start: 20170405, end: 20171124

REACTIONS (4)
  - Disease progression [Fatal]
  - Stress [Not Recovered/Not Resolved]
  - Pulmonary hypertension [Fatal]
  - Amnesia [Not Recovered/Not Resolved]

NARRATIVE: CASE EVENT DATE: 20170818
